FAERS Safety Report 6057927-7 (Version None)
Quarter: 2009Q1

REPORT INFORMATION
  Report Type: 
  Country: None (occurrence: None)
  Receive Date: 20090129
  Receipt Date: 20090127
  Transmission Date: 20090719
  Serious: Yes (Other)
  Sender: FDA-Public Use
  Company Number: US-MERCK-0901USA02664

PATIENT
  Age: 63 Year
  Sex: Male
  Weight: 70 kg

DRUGS (4)
  1. SINGULAIR [Suspect]
     Indication: RHINITIS ALLERGIC
     Route: 048
     Dates: start: 20081112
  2. SINGULAIR [Suspect]
     Indication: WHEEZING
     Route: 048
     Dates: start: 20081112
  3. NASAREL [Concomitant]
     Indication: RHINITIS ALLERGIC
     Route: 065
     Dates: start: 19990101
  4. AUGMENTIN '125' [Concomitant]
     Indication: CELLULITIS
     Route: 048

REACTIONS (1)
  - SYNOVITIS [None]
